FAERS Safety Report 17198673 (Version 1)
Quarter: 2019Q4

REPORT INFORMATION
  Report Type: Spontaneous
  Country: DE (occurrence: DE)
  Receive Date: 20191225
  Receipt Date: 20191225
  Transmission Date: 20200122
  Serious: Yes (Other)
  Sender: FDA-Public Use
  Company Number: DE-TEVA-2019-DE-1155875

PATIENT
  Age: 82 Year
  Sex: Female

DRUGS (13)
  1. RISPERIDON [Suspect]
     Active Substance: RISPERIDONE
     Dosage: 2 MG
     Dates: start: 20180425
  2. VESIKUR [Suspect]
     Active Substance: SOLIFENACIN SUCCINATE
     Dosage: 2.5 MG
     Dates: start: 20180320, end: 20180509
  3. VESIKUR [Suspect]
     Active Substance: SOLIFENACIN SUCCINATE
     Dosage: 2.5 MG, TAKING UNTIL FURTHER NOTICE
     Dates: start: 20180519
  4. VESIKUR [Suspect]
     Active Substance: SOLIFENACIN SUCCINATE
     Indication: HYPERTONIC BLADDER
     Dosage: 5 MG, INTAKE FOR A LONG TIME
     Dates: end: 20180319
  5. MIRTAZAPIN [Suspect]
     Active Substance: MIRTAZAPINE
     Dosage: 30 MG
     Dates: start: 20180503, end: 20180508
  6. RAMIPRIL. [Concomitant]
     Active Substance: RAMIPRIL
     Indication: HYPERTONIA
     Dosage: 10 MG, INTAKE FOR A LONG TIME, UNTIL FURTHER NOTICE
  7. DORZOLAMID AUGENTROPFEN [Concomitant]
     Active Substance: DORZOLAMIDE
     Indication: GLAUCOMA
     Dosage: TAKING FOR SOME TIME, UNTIL FURTHER NOTICE; 20MG / ML
  8. RISPERIDON [Suspect]
     Active Substance: RISPERIDONE
     Dosage: 3 MG
     Dates: start: 20180405, end: 20180424
  9. RISPERIDON [Suspect]
     Active Substance: RISPERIDONE
     Dosage: 2 MG
     Dates: start: 20180319, end: 20180404
  10. MIRTAZAPIN [Suspect]
     Active Substance: MIRTAZAPINE
     Dosage: 30 MG
     Dates: start: 20180510, end: 20180510
  11. BISOPROLOL [Concomitant]
     Active Substance: BISOPROLOL
     Dosage: 5 MG
     Dates: start: 20180501
  12. MIRTAZAPIN [Suspect]
     Active Substance: MIRTAZAPINE
     Dosage: 15 MG
     Dates: start: 20180427, end: 20180502
  13. MIRTAZAPIN [Suspect]
     Active Substance: MIRTAZAPINE
     Dosage: 45 MG
     Dates: start: 20180509, end: 20180509

REACTIONS (1)
  - Urinary hesitation [Recovered/Resolved]

NARRATIVE: CASE EVENT DATE: 20180509
